FAERS Safety Report 25198984 (Version 1)
Quarter: 2025Q2

REPORT INFORMATION
  Report Type: Other
  Country: US (occurrence: US)
  Receive Date: 20250415
  Receipt Date: 20250415
  Transmission Date: 20250717
  Serious: Yes (Hospitalization, Other)
  Sender: CHANGZHOU PHARMACEUTICAL FACTORY
  Company Number: US-Changzhou Pharmaceutical Factory-2174932

PATIENT
  Age: 36 Year
  Sex: Female

DRUGS (1)
  1. ROSUVASTATIN CALCIUM [Suspect]
     Active Substance: ROSUVASTATIN CALCIUM
     Indication: Hyperlipidaemia

REACTIONS (1)
  - Electrocardiogram QT prolonged [Recovered/Resolved]
